FAERS Safety Report 4954066-0 (Version None)
Quarter: 2006Q1

REPORT INFORMATION
  Report Type: 
  Country: None (occurrence: None)
  Receive Date: 20060321
  Receipt Date: 20060310
  Transmission Date: 20060701
  Serious: No
  Sender: FDA-Public Use
  Company Number: 2006-139664-NL

PATIENT
  Age: 35 Year
  Sex: Female

DRUGS (4)
  1. MIRTAZAPINE [Suspect]
     Dosage: 2.5 MG TW
     Dates: end: 20060124
  2. ALPRAZOLAM [Suspect]
     Indication: ANXIETY DISORDER
     Dosage: 0.5 MG QD
     Route: 048
     Dates: end: 20060124
  3. OLANZAPINE [Suspect]
     Indication: SCHIZOAFFECTIVE DISORDER
     Dosage: 0.5 MG TID
     Route: 048
     Dates: end: 20060124
  4. ZOLPIDEM TARTRATE [Concomitant]

REACTIONS (2)
  - DRUG EXPOSURE DURING PREGNANCY [None]
  - PREGNANCY [None]
